FAERS Safety Report 8397082-1 (Version None)
Quarter: 2012Q2

REPORT INFORMATION
  Report Type: 
  Country: None (occurrence: None)
  Receive Date: 20120530
  Receipt Date: 20120515
  Transmission Date: 20120825
  Serious: Yes (Other)
  Sender: FDA-Public Use
  Company Number: CHPA2012US011048

PATIENT
  Sex: Female

DRUGS (6)
  1. BENEFIBER W/ WHEAT DEXTRIN [Suspect]
     Indication: BOWEL MOVEMENT IRREGULARITY
     Dosage: LESS THAN 2 TSP, QD
     Route: 048
     Dates: start: 20060101
  2. BENEFIBER W/ WHEAT DEXTRIN [Suspect]
     Dosage: 3 TSP, QD
     Route: 048
  3. DRUG USED IN DIABETES [Concomitant]
     Indication: DIABETES MELLITUS
     Dosage: 4 MG, UNK
     Dates: end: 20110101
  4. METAMUCIL-2 [Concomitant]
     Dosage: UNK
  5. METFORMIN HCL [Concomitant]
     Indication: DIABETES MELLITUS
     Dosage: 500 MG, BID
     Route: 048
  6. DRUG THERAPY NOS [Concomitant]
     Indication: BOWEL MOVEMENT IRREGULARITY
     Dosage: 1 DF, PRN
     Route: 048

REACTIONS (3)
  - INCORRECT DOSE ADMINISTERED [None]
  - OFF LABEL USE [None]
  - DEPRESSION [None]
